FAERS Safety Report 20786331 (Version 1)
Quarter: 2022Q2

REPORT INFORMATION
  Report Type: Spontaneous
  Country: US (occurrence: None)
  Receive Date: 20220504
  Receipt Date: 20220504
  Transmission Date: 20220721
  Serious: No
  Sender: FDA-Public Use
  Company Number: US-ROCHE-2991207

PATIENT
  Age: 41 Year
  Sex: Female
  Weight: 63.560 kg

DRUGS (3)
  1. OCREVUS [Suspect]
     Active Substance: OCRELIZUMAB
     Indication: Multiple sclerosis
     Dosage: 1ST 2 DOSES ;ONGOING: YES
     Route: 042
     Dates: start: 20211208
  2. OXYBUTYNIN [Concomitant]
     Active Substance: OXYBUTYNIN
     Indication: Micturition urgency
     Dosage: YES
     Dates: start: 202110
  3. GABAPENTIN [Concomitant]
     Active Substance: GABAPENTIN
     Indication: Restless legs syndrome
     Dosage: TAKES AS NEEDED ;ONGOING: YES
     Dates: start: 2011

REACTIONS (3)
  - Dry mouth [Recovered/Resolved]
  - Rash macular [Recovered/Resolved]
  - Paraesthesia [Recovered/Resolved]

NARRATIVE: CASE EVENT DATE: 20211208
